FAERS Safety Report 5655878-0 (Version None)
Quarter: 2008Q1

REPORT INFORMATION
  Report Type: 
  Country: None (occurrence: None)
  Receive Date: 20080307
  Receipt Date: 20071113
  Transmission Date: 20080703
  Serious: Yes (Death, Hospitalization)
  Sender: FDA-Public Use
  Company Number: JP-PFIZER INC-2008017795

PATIENT
  Age: 76 Year
  Sex: Male

DRUGS (2)
  1. PREDNISOLONE [Suspect]
     Indication: DERMATOMYOSITIS
     Dosage: DAILY DOSE:100MG-FREQ:DAILY: STARTING DOSE
  2. PREDNISOLONE [Suspect]
     Dosage: DAILY DOSE:35MG-FREQ:DAILY: DOSE AT ONSET

REACTIONS (1)
  - DISSEMINATED TUBERCULOSIS [None]
